FAERS Safety Report 24061169 (Version 2)
Quarter: 2024Q3

REPORT INFORMATION
  Report Type: Spontaneous
  Country: US (occurrence: US)
  Receive Date: 20240708
  Receipt Date: 20240718
  Transmission Date: 20241016
  Serious: No
  Sender: PFIZER
  Company Number: US-PFIZER INC-202400207810

PATIENT
  Age: 29 Year
  Sex: Female

DRUGS (5)
  1. XELJANZ XR [Suspect]
     Active Substance: TOFACITINIB CITRATE
     Dosage: 11 MG, 1X/DAY (1 TABLET EVERY DAY)
  2. HYDROXYCHLOROQUINE SULFATE [Concomitant]
     Active Substance: HYDROXYCHLOROQUINE SULFATE
     Dosage: UNK
  3. GABAPENTIN [Concomitant]
     Active Substance: GABAPENTIN
     Dosage: UNK
  4. SPIRONOLACTONE [Concomitant]
     Active Substance: SPIRONOLACTONE
     Dosage: UNK
  5. MELOXICAM [Concomitant]
     Active Substance: MELOXICAM
     Dosage: UNK

REACTIONS (2)
  - Nasal congestion [Recovered/Resolved]
  - Pyrexia [Recovered/Resolved]

NARRATIVE: CASE EVENT DATE: 20240623
